FAERS Safety Report 6717468-8 (Version None)
Quarter: 2010Q2

REPORT INFORMATION
  Report Type: 
  Country: None (occurrence: None)
  Receive Date: 20100510
  Receipt Date: 20100426
  Transmission Date: 20101027
  Serious: Yes (Hospitalization)
  Sender: FDA-Public Use
  Company Number: US-ROCHE-701077

PATIENT
  Age: 41 Year
  Sex: Female

DRUGS (2)
  1. CEFTRIAXONE [Suspect]
     Route: 042
  2. GENTAMICIN [Suspect]
     Route: 042

REACTIONS (4)
  - SEPTIC EMBOLUS [None]
  - SUBACUTE ENDOCARDITIS [None]
  - THERAPEUTIC PRODUCT INEFFECTIVE [None]
  - THROMBOSIS [None]
